FAERS Safety Report 7141132-7 (Version None)
Quarter: 2010Q4

REPORT INFORMATION
  Report Type: 
  Country: None (occurrence: None)
  Receive Date: 20101207
  Receipt Date: 20101123
  Transmission Date: 20110411
  Serious: Yes (Hospitalization)
  Sender: FDA-Public Use
  Company Number: US-CELGENEUS-163-21880-10112815

PATIENT
  Sex: Female
  Weight: 53.572 kg

DRUGS (3)
  1. REVLIMID [Suspect]
     Indication: MULTIPLE MYELOMA
     Route: 048
     Dates: start: 20091101
  2. REVLIMID [Suspect]
     Route: 048
     Dates: start: 20100501, end: 20100801
  3. REVLIMID [Suspect]
     Route: 048
     Dates: start: 20100801, end: 20101119

REACTIONS (6)
  - DECREASED APPETITE [None]
  - FAILURE TO THRIVE [None]
  - FATIGUE [None]
  - MUSCULAR WEAKNESS [None]
  - NAUSEA [None]
  - WEIGHT DECREASED [None]
